FAERS Safety Report 4680773-3 (Version None)
Quarter: 2005Q2

REPORT INFORMATION
  Report Type: 
  Country: None (occurrence: None)
  Receive Date: 20050601
  Receipt Date: 20050520
  Transmission Date: 20051028
  Serious: Yes (Hospitalization)
  Sender: FDA-Public Use
  Company Number: 2005062813

PATIENT
  Age: 53 Year
  Sex: Male

DRUGS (8)
  1. CEFPODOXIME PROXETIL [Suspect]
     Indication: INFLUENZA
     Dosage: 200 MG (DAILY), ORAL
     Route: 048
     Dates: start: 20500407, end: 20050411
  2. OSELTAMIVIR (OSELTAMIVIR) [Suspect]
     Indication: INFLUENZA
     Dosage: 150 MG (DAILY), ORAL
     Route: 048
     Dates: start: 20050407, end: 20050411
  3. ACETAMINOPHEN [Concomitant]
  4. GLIMEPIRIDE [Concomitant]
  5. LOSARTAN POTASSIUM [Concomitant]
  6. ACARBOSE (ACARBOSE) [Concomitant]
  7. COMPOUND CODEINE TABLETS (ACETYLSALICYLIC ACID, CODEINE PHOSPHATE, PHE [Concomitant]
  8. AZITHROMYCIN [Concomitant]

REACTIONS (2)
  - GALLBLADDER DISORDER [None]
  - HEPATITIS ACUTE [None]
